FAERS Safety Report 5927410-5 (Version None)
Quarter: 2008Q4

REPORT INFORMATION
  Report Type: 
  Country: None (occurrence: None)
  Receive Date: 20081021
  Receipt Date: 20081021
  Transmission Date: 20090506
  Serious: Yes (Death)
  Sender: FDA-Public Use
  Company Number: None

PATIENT
  Sex: Male
  Weight: 58.9676 kg

DRUGS (1)
  1. TYSABRI [Suspect]
     Indication: MULTIPLE SCLEROSIS
     Dosage: 300 MCG Q D WKS IV
     Route: 042
     Dates: start: 20060918, end: 20071102

REACTIONS (7)
  - ANOREXIA [None]
  - ASTHENIA [None]
  - DECUBITUS ULCER [None]
  - DISEASE PROGRESSION [None]
  - PNEUMONIA [None]
  - URINARY INCONTINENCE [None]
  - URINARY TRACT INFECTION [None]
